FAERS Safety Report 6244640-6 (Version None)
Quarter: 2009Q2

REPORT INFORMATION
  Report Type: 
  Country: None (occurrence: None)
  Receive Date: 20090625
  Receipt Date: 20090317
  Transmission Date: 20091009
  Serious: No
  Sender: FDA-Public Use
  Company Number: US-BAYER-200915869NA

PATIENT
  Sex: Female

DRUGS (1)
  1. YAZ [Suspect]
     Indication: DRUG USE FOR UNKNOWN INDICATION
     Route: 048
     Dates: start: 20090227

REACTIONS (4)
  - ABDOMINAL PAIN LOWER [None]
  - ABNORMAL BEHAVIOUR [None]
  - AFFECT LABILITY [None]
  - ANXIETY [None]
